FAERS Safety Report 10642483 (Version 1)
Quarter: 2014Q4

REPORT INFORMATION
  Report Type: Spontaneous
  Country: CA (occurrence: CA)
  Receive Date: 20141210
  Receipt Date: 20141210
  Transmission Date: 20150529
  Serious: Yes (Hospitalization, Other)
  Sender: FDA-Public Use
  Company Number: CA-ELI_LILLY_AND_COMPANY-CA201412001549

PATIENT
  Age: 53 Year
  Sex: Female

DRUGS (1)
  1. HUMALOG [Suspect]
     Active Substance: INSULIN LISPRO
     Indication: TYPE 1 DIABETES MELLITUS
     Dosage: 10 U, PRN
     Route: 065
     Dates: start: 2007

REACTIONS (8)
  - Muscular weakness [Unknown]
  - Hypersomnia [Unknown]
  - Incorrect product storage [Unknown]
  - Diabetic ketoacidosis [Unknown]
  - Muscle atrophy [Unknown]
  - Fatigue [Unknown]
  - Abnormal loss of weight [Unknown]
  - Blood glucose increased [Unknown]

NARRATIVE: CASE EVENT DATE: 201010
